FAERS Safety Report 17110180 (Version 1)
Quarter: 2019Q4

REPORT INFORMATION
  Report Type: Spontaneous
  Country: CN (occurrence: CN)
  Receive Date: 20191204
  Receipt Date: 20191204
  Transmission Date: 20200122
  Serious: Yes (Other)
  Sender: FDA-Public Use
  Company Number: CN-GLAXOSMITHKLINE-CN2019APC207630

PATIENT

DRUGS (3)
  1. SODIUM CHLORIDE. [Concomitant]
     Active Substance: SODIUM CHLORIDE
     Indication: VEHICLE SOLUTION USE
     Dosage: 2.0 ML, BID
     Route: 055
     Dates: start: 20191012, end: 20191013
  2. ATROVENT [Concomitant]
     Active Substance: IPRATROPIUM BROMIDE
     Indication: ASTHMA
     Dosage: 250.0 ?G, BID
     Route: 055
     Dates: start: 20191012, end: 20191013
  3. VENTOLIN [Suspect]
     Active Substance: ALBUTEROL SULFATE
     Indication: ASTHMA
     Dosage: 2.5 MG, BID
     Route: 055
     Dates: start: 20191012, end: 20191013

REACTIONS (6)
  - Pyrexia [Recovering/Resolving]
  - Heart rate increased [Recovered/Resolved]
  - Flushing [Recovering/Resolving]
  - Tachycardia [Recovering/Resolving]
  - Irritability [Recovering/Resolving]
  - Drug hypersensitivity [Recovered/Resolved]

NARRATIVE: CASE EVENT DATE: 20191013
